FAERS Safety Report 8651587 (Version 2)
Quarter: 2012Q4

REPORT INFORMATION
  Report Type: 
  Country: US (occurrence: US)
  Receive Date: 20120706
  Receipt Date: 20120905
  Transmission Date: 20130627
  Serious: Yes (Other)
  Sender: FDA-Public Use
  Company Number: US-BAYER-2012-065516

PATIENT
  Age: 34 Year
  Sex: Female
  Weight: 56.24 kg

DRUGS (5)
  1. MIRENA [Suspect]
     Indication: CONTRACEPTION
     Dosage: 20 mcg/24hr, CONT
     Route: 015
     Dates: start: 20120629
  2. MIFEPREX [Concomitant]
     Indication: ABORTION INDUCED
     Dosage: 3 UNK, UNK
     Route: 048
     Dates: start: 20120607, end: 20120607
  3. MIFEPREX [Concomitant]
     Indication: ABORTION INDUCED
     Dosage: 2 UNK, UNK
     Route: 048
     Dates: start: 20120609, end: 20120609
  4. TYLENOL W/CODEINE NO. 3 [Concomitant]
     Indication: PAIN
     Dosage: UNK
     Dates: start: 201206
  5. DOXYCYCLIN [DOXYCYCLINE] [Concomitant]
     Indication: ABORTION INDUCED
     Dosage: UNK
     Dates: start: 201206

REACTIONS (6)
  - Pharyngitis streptococcal [None]
  - Procedural pain [None]
  - Ear infection [None]
  - Tympanic membrane perforation [None]
  - Sinusitis [None]
  - Pain [None]
